FAERS Safety Report 23062959 (Version 1)
Quarter: 2023Q4

REPORT INFORMATION
  Report Type: Spontaneous
  Country: US (occurrence: US)
  Receive Date: 20231013
  Receipt Date: 20231013
  Transmission Date: 20240109
  Serious: No
  Sender: FDA-Public Use
  Company Number: US-APOTEX-2023AP012321

PATIENT
  Sex: Male

DRUGS (3)
  1. FLUTICASONE [Suspect]
     Active Substance: FLUTICASONE
     Indication: Product used for unknown indication
     Dosage: 4 DOSAGE FORM, QD (2 SPRAYS IN EACH NOSTRIL DAILY)
     Route: 045
  2. FLUTICASONE [Suspect]
     Active Substance: FLUTICASONE
     Dosage: 4 DOSAGE FORM, QD (2 SPRAYS IN EACH NOSTRIL DAILY)
     Route: 045
  3. FLUTICASONE [Suspect]
     Active Substance: FLUTICASONE
     Dosage: 4 DOSAGE FORM, QD (2 SPRAYS IN EACH NOSTRIL DAILY)
     Route: 045

REACTIONS (3)
  - Product dose omission issue [Unknown]
  - Product delivery mechanism issue [Unknown]
  - Manufacturing issue [Unknown]

NARRATIVE: CASE EVENT DATE: 20230101
